FAERS Safety Report 9794914 (Version 1)
Quarter: 2014Q1

REPORT INFORMATION
  Report Type: Spontaneous
  Country: US (occurrence: US)
  Receive Date: 20140102
  Receipt Date: 20140102
  Transmission Date: 20141002
  Serious: No
  Sender: FDA-Public Use
  Company Number: US-JHP PHARMACEUTICALS, LLC-JHP201300427

PATIENT
  Age: 14 Year
  Sex: Male

DRUGS (4)
  1. APLISOL DIAGNOSTIC ANTIGEN [Suspect]
     Indication: TUBERCULIN TEST
     Dosage: 0.1 ML, SINGLE
     Route: 023
     Dates: start: 20130619, end: 20130619
  2. FLUORIDE [Suspect]
     Dosage: UNK
     Dates: start: 20130619, end: 20130619
  3. BENADRYL [Concomitant]
     Indication: HYPERSENSITIVITY
  4. BENADRYL [Concomitant]
     Indication: HYPERSENSITIVITY

REACTIONS (1)
  - Hypersensitivity [Recovered/Resolved]
